FAERS Safety Report 6169349-9 (Version None)
Quarter: 2009Q2

REPORT INFORMATION
  Report Type: 
  Country: None (occurrence: None)
  Receive Date: 20090428
  Receipt Date: 20090422
  Transmission Date: 20091009
  Serious: No
  Sender: FDA-Public Use
  Company Number: US-B.I. PHARMACEUTICALS,INC./RIDGEFIELD-2009-BP-05153BP

PATIENT
  Sex: Male

DRUGS (2)
  1. ZANTAC [Suspect]
     Indication: DYSPEPSIA
     Dosage: 150MG
     Route: 048
     Dates: start: 20090418, end: 20090418
  2. PROZAC [Concomitant]
     Indication: ANXIETY
     Dosage: 15MG
     Route: 048
     Dates: start: 20070101

REACTIONS (1)
  - OEDEMA MOUTH [None]
